FAERS Safety Report 6997514-7 (Version None)
Quarter: 2010Q3

REPORT INFORMATION
  Report Type: 
  Country: None (occurrence: None)
  Receive Date: 20100918
  Receipt Date: 20091102
  Transmission Date: 20110219
  Serious: No
  Sender: FDA-Public Use
  Company Number: US-WYE-H11982209

PATIENT
  Sex: Male

DRUGS (12)
  1. PRISTIQ [Suspect]
     Indication: DEPRESSION
     Route: 048
     Dates: start: 20091031
  2. PROCARDIA [Concomitant]
  3. SYNTHROID [Concomitant]
  4. LASIX [Concomitant]
  5. CLONIDINE [Concomitant]
  6. AMBIEN CR [Concomitant]
  7. ASPIRIN [Concomitant]
  8. FEOSOL [Concomitant]
  9. LABETALOL HCL [Concomitant]
  10. HYDRALAZINE HCL [Concomitant]
  11. CLOPIDOGREL BISULFATE [Concomitant]
  12. XANAX [Concomitant]

REACTIONS (1)
  - HOT FLUSH [None]
